FAERS Safety Report 16914738 (Version 4)
Quarter: 2019Q4

REPORT INFORMATION
  Report Type: Spontaneous
  Country: US (occurrence: US)
  Receive Date: 20191014
  Receipt Date: 20191210
  Transmission Date: 20200122
  Serious: Yes (Disabling, Other)
  Sender: FDA-Public Use
  Company Number: US-PFIZER INC-2019437382

PATIENT
  Age: 79 Year
  Sex: Female
  Weight: 104 kg

DRUGS (2)
  1. PREMARIN [Suspect]
     Active Substance: ESTROGENS, CONJUGATED
     Dosage: 2 MG, 2X/WEEK
     Dates: start: 20191001
  2. PREMARIN [Suspect]
     Active Substance: ESTROGENS, CONJUGATED
     Indication: MACULAR OEDEMA
     Dosage: 2 G, TWO TIMES A WEEK

REACTIONS (7)
  - Haemorrhage [Unknown]
  - Intentional product misuse [Unknown]
  - Product packaging quantity issue [Recovered/Resolved]
  - Product dose omission [Unknown]
  - Off label use [Recovered/Resolved]
  - Joint injury [Unknown]
  - Product use in unapproved indication [Recovered/Resolved]

NARRATIVE: CASE EVENT DATE: 20191004
